FAERS Safety Report 8758779 (Version 1)
Quarter: 2012Q4

REPORT INFORMATION
  Report Type: Spontaneous
  Country: US (occurrence: None)
  Receive Date: 20120828
  Receipt Date: 20120828
  Transmission Date: 20130627
  Serious: Yes (Hospitalization)
  Sender: FDA-Public Use
  Company Number: None

PATIENT
  Sex: Female
  Weight: 8.6 kg

DRUGS (6)
  1. MERCAPTOPURINE [Suspect]
     Dates: end: 20120423
  2. METHOTREXATE [Suspect]
     Dates: end: 20120420
  3. VINCRISTINE [Suspect]
     Dates: end: 20120406
  4. BACTRIM [Concomitant]
  5. CLINDAMYCIN [Concomitant]
  6. OMNICEF [Concomitant]

REACTIONS (1)
  - Alanine aminotransferase increased [None]
